FAERS Safety Report 6444562-1 (Version None)
Quarter: 2009Q4

REPORT INFORMATION
  Report Type: 
  Country: None (occurrence: None)
  Receive Date: 20091118
  Receipt Date: 20091103
  Transmission Date: 20100525
  Serious: No
  Sender: FDA-Public Use
  Company Number: A0805174A

PATIENT
  Age: 74 Year
  Sex: Female

DRUGS (5)
  1. COREG CR [Suspect]
     Indication: DRUG USE FOR UNKNOWN INDICATION
     Dosage: 80MG PER DAY
     Route: 048
     Dates: start: 20080804
  2. CALCIUM CITRATE [Concomitant]
  3. M.V.I. [Concomitant]
  4. MAVIK [Concomitant]
  5. HYDROCHLOROTHIAZIDE [Concomitant]

REACTIONS (6)
  - CONDITION AGGRAVATED [None]
  - COUGH [None]
  - FALL [None]
  - FEELING ABNORMAL [None]
  - NASAL DISCOMFORT [None]
  - VERTIGO [None]
